FAERS Safety Report 11834029 (Version 1)
Quarter: 2015Q4

REPORT INFORMATION
  Report Type: Spontaneous
  Country: US (occurrence: US)
  Receive Date: 20151214
  Receipt Date: 20151214
  Transmission Date: 20160305
  Serious: Yes (Other)
  Sender: FDA-Public Use
  Company Number: US-TAKEDA-2015TUS017780

PATIENT
  Age: 32 Year
  Sex: Female

DRUGS (2)
  1. COLCHICINE. [Suspect]
     Active Substance: COLCHICINE
     Indication: FAMILIAL MEDITERRANEAN FEVER
     Dosage: UNK
     Route: 065
  2. COLCHICINE. [Suspect]
     Active Substance: COLCHICINE
     Indication: PERICARDITIS

REACTIONS (4)
  - Drug intolerance [Recovering/Resolving]
  - Abortion spontaneous [Recovered/Resolved]
  - Off label use [Unknown]
  - Pregnancy [Unknown]
